FAERS Safety Report 9278499 (Version 1)
Quarter: 2013Q2

REPORT INFORMATION
  Report Type: Spontaneous
  Country: US (occurrence: US)
  Receive Date: 20130508
  Receipt Date: 20130508
  Transmission Date: 20140414
  Serious: Yes (Death)
  Sender: FDA-Public Use
  Company Number: US-SANOFI-AVENTIS-2013SA044407

PATIENT
  Age: 42 Year
  Sex: Male

DRUGS (1)
  1. AMBIEN [Suspect]

REACTIONS (1)
  - Road traffic accident [Fatal]
